FAERS Safety Report 15887437 (Version 2)
Quarter: 2019Q1

REPORT INFORMATION
  Report Type: Report from Study
  Country: DE (occurrence: DE)
  Receive Date: 20190130
  Receipt Date: 20190327
  Transmission Date: 20190417
  Serious: Yes (Other)
  Sender: FDA-Public Use
  Company Number: DE-TEVA-2017-DE-827556

PATIENT
  Sex: Male

DRUGS (1)
  1. COPAXONE [Suspect]
     Active Substance: GLATIRAMER ACETATE
     Indication: MULTIPLE SCLEROSIS
     Dates: start: 20150909, end: 20190320

REACTIONS (9)
  - Nasal dryness [Unknown]
  - Intestinal haemorrhage [Unknown]
  - Gastrointestinal mucosal disorder [Unknown]
  - Coating in mouth [Unknown]
  - Oral disorder [Unknown]
  - Aphthous ulcer [Unknown]
  - Colitis ulcerative [Not Recovered/Not Resolved]
  - Anorectal disorder [Unknown]
  - Rhinalgia [Unknown]

NARRATIVE: CASE EVENT DATE: 2017
